FAERS Safety Report 18343691 (Version 1)
Quarter: 2020Q4

REPORT INFORMATION
  Report Type: Spontaneous
  Country: US (occurrence: US)
  Receive Date: 20201005
  Receipt Date: 20201005
  Transmission Date: 20210114
  Serious: Yes (Other)
  Sender: FDA-Public Use
  Company Number: US-JNJFOC-A-CH2020-202310

PATIENT
  Sex: Male

DRUGS (14)
  1. TRACLEER [Suspect]
     Active Substance: BOSENTAN
     Indication: PULMONARY HYPERTENSION
     Route: 048
  2. ASPIRIN. [Concomitant]
     Active Substance: ASPIRIN
  3. OXYGEN. [Concomitant]
     Active Substance: OXYGEN
  4. ALBUTEROL                          /00139501/ [Concomitant]
     Active Substance: ALBUTEROL
  5. AMBRISENTAN [Concomitant]
     Active Substance: AMBRISENTAN
  6. FUROSEMIDE. [Concomitant]
     Active Substance: FUROSEMIDE
  7. NITRIC OXIDE. [Concomitant]
     Active Substance: NITRIC OXIDE
  8. CHLOROTHIAZIDE. [Concomitant]
     Active Substance: CHLOROTHIAZIDE
  9. VELETRI [Suspect]
     Active Substance: EPOPROSTENOL
     Indication: PULMONARY HYPERTENSION
     Route: 042
  10. SILDENAFIL. [Concomitant]
     Active Substance: SILDENAFIL
  11. SPIRONOLACTONE. [Concomitant]
     Active Substance: SPIRONOLACTONE
  12. BECLOMETHASONE                     /00212601/ [Concomitant]
     Active Substance: BECLOMETHASONE
  13. DIGOXIN. [Concomitant]
     Active Substance: DIGOXIN
  14. AMLODIPINE [Concomitant]
     Active Substance: AMLODIPINE BESYLATE

REACTIONS (12)
  - Right ventricular failure [Unknown]
  - Oxygen consumption increased [Unknown]
  - Pulmonary arterial pressure abnormal [Unknown]
  - Haemophilus infection [Unknown]
  - Respiratory tract infection [Unknown]
  - Pulmonary arterial pressure increased [Unknown]
  - Rhinovirus infection [Unknown]
  - Biopsy lung [Unknown]
  - Pulmonary hypertension [Unknown]
  - Condition aggravated [Unknown]
  - Brain natriuretic peptide increased [Unknown]
  - Off label use [Unknown]
